FAERS Safety Report 10040892 (Version 2)
Quarter: 2014Q2

REPORT INFORMATION
  Report Type: Spontaneous
  Country: US (occurrence: US)
  Receive Date: 20140327
  Receipt Date: 20140509
  Transmission Date: 20141212
  Serious: No
  Sender: FDA-Public Use
  Company Number: US-PFIZER INC-2014083048

PATIENT
  Age: 71 Year
  Sex: Female
  Weight: 98.41 kg

DRUGS (2)
  1. GENOTROPIN [Suspect]
     Indication: HYPOPITUITARISM
     Dosage: 0.2 MG, 1X/DAY
     Route: 058
     Dates: start: 201310, end: 20140312
  2. GENOTROPIN [Suspect]
     Indication: DWARFISM

REACTIONS (5)
  - Neuropathy peripheral [Unknown]
  - Weight increased [Unknown]
  - Nervous system disorder [Unknown]
  - Arthralgia [Unknown]
  - Insomnia [Unknown]
